FAERS Safety Report 18912921 (Version 18)
Quarter: 2022Q2

REPORT INFORMATION
  Report Type: Spontaneous
  Country: GB (occurrence: GB)
  Receive Date: 20210219
  Receipt Date: 20220401
  Transmission Date: 20220720
  Serious: Yes (Hospitalization, Other)
  Sender: FDA-Public Use
  Company Number: GB-EMA-DD-20201214-SANDEVHP-120903

PATIENT
  Age: 57 Year
  Sex: Female

DRUGS (144)
  1. ANASTROZOLE [Suspect]
     Active Substance: ANASTROZOLE
     Indication: Product used for unknown indication
     Dosage: 1 MILLIGRAM, DAILY, 1 MG, QD (1/DAY)
     Route: 048
  2. ANASTROZOLE [Suspect]
     Active Substance: ANASTROZOLE
     Dosage: 1 MILLIGRAM, DAILY
     Route: 048
     Dates: start: 20151021, end: 20171027
  3. EXEMESTANE [Suspect]
     Active Substance: EXEMESTANE
     Indication: Breast cancer metastatic
     Dosage: 25 MILLIGRAM, DAILY
     Route: 048
     Dates: start: 20150328
  4. EXEMESTANE [Suspect]
     Active Substance: EXEMESTANE
     Indication: Product used for unknown indication
     Dosage: UNK
     Route: 065
  5. VINORELBINE TARTRATE [Suspect]
     Active Substance: VINORELBINE TARTRATE
     Indication: Product used for unknown indication
     Dosage: 100 MILLIGRAM, DAILY
     Route: 048
     Dates: start: 20161111
  6. VINORELBINE TARTRATE [Suspect]
     Active Substance: VINORELBINE TARTRATE
     Dosage: 100 MILLIGRAM
     Route: 048
     Dates: start: 20160901, end: 20161028
  7. VINORELBINE TARTRATE [Suspect]
     Active Substance: VINORELBINE TARTRATE
     Dosage: 100 MILLIGRAM
     Route: 048
     Dates: start: 20161028, end: 20161028
  8. VINORELBINE TARTRATE [Suspect]
     Active Substance: VINORELBINE TARTRATE
     Dosage: 100 MILLIGRAM
     Route: 048
     Dates: start: 20160901, end: 20160930
  9. VINORELBINE [Suspect]
     Active Substance: VINORELBINE TARTRATE
     Indication: Breast cancer metastatic
     Dosage: 100 MILLIGRAM, DAILY
     Route: 048
  10. TRASTUZUMAB [Suspect]
     Active Substance: TRASTUZUMAB
     Indication: Product used for unknown indication
     Dosage: 462 MILLIGRAM EVERY 3 WEEKS
     Route: 042
     Dates: start: 20150506, end: 20150506
  11. TRASTUZUMAB [Suspect]
     Active Substance: TRASTUZUMAB
     Dosage: 462 MILLIGRAM EVERY 3 WEEKS
     Route: 042
     Dates: start: 20150527
  12. PERTUZUMAB [Suspect]
     Active Substance: PERTUZUMAB
     Indication: Product used for unknown indication
     Dosage: 840 MILLIGRAM, UNK
     Route: 042
     Dates: start: 20150507, end: 20150507
  13. PERTUZUMAB [Suspect]
     Active Substance: PERTUZUMAB
     Dosage: 420 MILLIGRAM, WEEKLY
     Route: 042
     Dates: start: 20150507, end: 20150507
  14. PERTUZUMAB [Suspect]
     Active Substance: PERTUZUMAB
     Dosage: 420 MILLIGRAM, WEEKLY
     Route: 042
     Dates: start: 20150527, end: 20160630
  15. CAPECITABINE [Suspect]
     Active Substance: CAPECITABINE
     Indication: Product used for unknown indication
     Dosage: 1650 MILLIGRAM
     Route: 048
  16. CAPECITABINE [Suspect]
     Active Substance: CAPECITABINE
     Indication: Breast cancer metastatic
     Dosage: 3300 MILLIGRAM, DAILY
     Route: 048
  17. ARIMIDEX [Suspect]
     Active Substance: ANASTROZOLE
     Indication: Breast cancer
     Dosage: 1 MILLIGRAM, DAILY, 1 MG, QD (1/DAY)
     Route: 048
  18. PERJETA [Suspect]
     Active Substance: PERTUZUMAB
     Indication: Breast cancer
     Dosage: 420 MILLIGRAM, 1 DOSE/3 WEEKS, EVERY 3 WEEKS
     Route: 042
  19. PERJETA [Suspect]
     Active Substance: PERTUZUMAB
     Dosage: 2520 MILLIGRAM, WEEKLY, LOADING DOSE
     Route: 042
     Dates: start: 20150507, end: 20150507
  20. PERJETA [Suspect]
     Active Substance: PERTUZUMAB
     Dosage: 840 MILLIGRAMS, Q3W (LOADING DOSE)
     Route: 042
     Dates: start: 20150507, end: 20150507
  21. PERJETA [Suspect]
     Active Substance: PERTUZUMAB
     Dosage: 357 MILLIGRAM, WEEKLY
     Route: 042
     Dates: start: 20150527, end: 20160630
  22. PERJETA [Suspect]
     Active Substance: PERTUZUMAB
     Dosage: 2520 MILLIGRAM, DAILY
     Route: 042
     Dates: start: 20150507, end: 20150507
  23. ADO-TRASTUZUMAB EMTANSINE [Suspect]
     Active Substance: ADO-TRASTUZUMAB EMTANSINE
     Indication: Breast cancer
     Dosage: 224 MILLIGRAM, UNK EVERY 3 WEEKS
     Route: 042
     Dates: start: 20170620, end: 20170830
  24. ADO-TRASTUZUMAB EMTANSINE [Suspect]
     Active Substance: ADO-TRASTUZUMAB EMTANSINE
     Dosage: 462 MILLIGRAM, WEEKLY
     Route: 042
     Dates: start: 20150506, end: 20150506
  25. ADO-TRASTUZUMAB EMTANSINE [Suspect]
     Active Substance: ADO-TRASTUZUMAB EMTANSINE
     Indication: Breast cancer metastatic
     Dosage: 357 MILLIGRAM, WEEKLY
     Route: 042
     Dates: start: 20150527, end: 20160630
  26. ADO-TRASTUZUMAB EMTANSINE [Suspect]
     Active Substance: ADO-TRASTUZUMAB EMTANSINE
     Dosage: 1071 MILLIGRAM, 1 DOSE/3 WEEKS
     Route: 042
     Dates: start: 20150527, end: 20160630
  27. HERCEPTIN [Suspect]
     Active Substance: TRASTUZUMAB
     Indication: Breast cancer
     Dosage: 462 MILLIGRAM, UNK, LOADING DOSE 3/WEEK (CV)
     Route: 042
  28. HERCEPTIN [Suspect]
     Active Substance: TRASTUZUMAB
     Dosage: 1071 MILLIGRAM, WEEKLY, 357 MG, EVERY 3 WEEKS
     Route: 042
     Dates: start: 20150527, end: 20160630
  29. HERCEPTIN [Suspect]
     Active Substance: TRASTUZUMAB
     Dosage: 357 MILLIGRAM, WEEKLY
     Route: 042
     Dates: start: 20160527, end: 20160630
  30. HERCEPTIN [Suspect]
     Active Substance: TRASTUZUMAB
     Dosage: 357 MILLIGRAM/3 WEEKS
     Route: 042
     Dates: start: 20170620
  31. NAVELBINE [Suspect]
     Active Substance: VINORELBINE TARTRATE
     Indication: Breast cancer
     Dosage: 100 MILLIGRAM, UNK, 100 UNK, UNK
     Route: 048
  32. NAVELBINE [Suspect]
     Active Substance: VINORELBINE TARTRATE
     Dosage: 100 MILLIGRAM, DAILY, 100 MG, QD (1/DAY)
     Route: 048
     Dates: start: 20161111
  33. NAVELBINE [Suspect]
     Active Substance: VINORELBINE TARTRATE
     Dosage: 100 MILLIGRAM, UNK, 100 MG, UNK
     Route: 048
     Dates: start: 20161028, end: 20161028
  34. XELODA [Suspect]
     Active Substance: CAPECITABINE
     Indication: Breast cancer
     Dosage: 3300 MG, UNK
     Route: 048
  35. XELODA [Suspect]
     Active Substance: CAPECITABINE
     Dosage: 3300 MG, UNK
     Route: 048
     Dates: start: 20160914
  36. XELODA [Suspect]
     Active Substance: CAPECITABINE
     Dosage: 3300 MILLIGRAM, DAILY
     Route: 048
  37. XELODA [Suspect]
     Active Substance: CAPECITABINE
     Dosage: 1650 MILLIGRAM, UNK
     Route: 048
     Dates: start: 20150901
  38. TAXOTERE [Suspect]
     Active Substance: DOCETAXEL
     Indication: Breast cancer
     Dosage: 130 MILLIGRAM, UNK, EVERY 3 WEEKS
     Route: 042
  39. TAXOTERE [Suspect]
     Active Substance: DOCETAXEL
     Dosage: 130 MILLIGRAM, UNK, EVERY 3 WEEKS
     Route: 042
     Dates: start: 20161111
  40. TAXOTERE [Suspect]
     Active Substance: DOCETAXEL
     Dosage: 100 MILLIGRAMS, DAILY
     Route: 042
     Dates: start: 20161111
  41. TAXOTERE [Suspect]
     Active Substance: DOCETAXEL
     Dosage: 100 MILLIGRAM, DAILY
     Route: 042
     Dates: start: 20160128, end: 20160128
  42. TAXOTERE [Suspect]
     Active Substance: DOCETAXEL
     Dosage: 130 MILLIGRAM, EVERY 3 WEEKS
     Route: 042
     Dates: start: 20150507, end: 20150903
  43. HERCEPTIN [Suspect]
     Active Substance: TRASTUZUMAB
     Indication: Breast cancer
     Dosage: LOADING DOSE 3/WEEK (CV)
     Route: 042
  44. HERCEPTIN [Suspect]
     Active Substance: TRASTUZUMAB
     Dosage: 357 MG, EVERY 3 WEEKS
     Route: 042
     Dates: start: 20150527, end: 20160630
  45. AROMASIN [Suspect]
     Active Substance: EXEMESTANE
     Indication: Breast cancer
     Dosage: 25 MG, QD (1/DAY)
     Route: 048
  46. AROMASIN [Suspect]
     Active Substance: EXEMESTANE
     Indication: Breast cancer
     Dosage: 25 MG, UNK
     Route: 048
     Dates: start: 20090921
  47. AROMASIN [Suspect]
     Active Substance: EXEMESTANE
     Dosage: 25 MG, QD (1/DAY)
     Route: 048
     Dates: start: 20150328
  48. AROMASIN [Suspect]
     Active Substance: EXEMESTANE
     Dosage: 1 DOSAGE FORM, DAILY
     Route: 048
     Dates: start: 201607, end: 20160921
  49. AROMASIN [Suspect]
     Active Substance: EXEMESTANE
     Dosage: 25 MILLIGRAM, DAILY
     Route: 048
     Dates: start: 20151021
  50. AROMASIN [Suspect]
     Active Substance: EXEMESTANE
     Dosage: 25 MILLIGRAM
     Route: 048
  51. DOCETAXEL [Suspect]
     Active Substance: DOCETAXEL
     Indication: Breast cancer
     Dosage: 130 MILLIGRAM, 1 DOSE/3 WEEKS
     Route: 042
     Dates: start: 20150507
  52. CODEINE [Concomitant]
     Active Substance: CODEINE
     Indication: Product used for unknown indication
     Dosage: UNK, UNKNOWN ()
     Route: 048
     Dates: start: 20150603, end: 20150715
  53. CODEINE [Concomitant]
     Active Substance: CODEINE
     Indication: Diarrhoea
     Dosage: UNK
     Route: 048
     Dates: start: 20150603
  54. CODEINE [Concomitant]
     Active Substance: CODEINE
     Dosage: UNK
     Route: 048
  55. DEXAMETHASONE [Concomitant]
     Active Substance: DEXAMETHASONE
     Indication: Premedication
     Dosage: 1 UNK
     Route: 048
     Dates: start: 20160713
  56. DEXAMETHASONE [Concomitant]
     Active Substance: DEXAMETHASONE
     Dosage: 1 DOSAGE FORM, DAILY
     Route: 048
     Dates: start: 20150506, end: 20150717
  57. DEXAMETHASONE [Concomitant]
     Active Substance: DEXAMETHASONE
     Dosage: 1 DOSAGE FORM, DAILY, 1 DF, QD (1/DAY)
     Route: 048
     Dates: start: 20161123, end: 20161130
  58. DEXAMETHASONE [Concomitant]
     Active Substance: DEXAMETHASONE
     Dosage: 1 DOSAGE FORM, DAILY, 1 DF, QD (1/DAY)
     Route: 048
     Dates: start: 20170216, end: 20170830
  59. DEXAMETHASONE [Concomitant]
     Active Substance: DEXAMETHASONE
     Dosage: 2 MG, UNKNOWN
     Route: 048
     Dates: start: 20160713, end: 20161004
  60. DEXAMETHASONE [Concomitant]
     Active Substance: DEXAMETHASONE
     Dosage: 2 MILLIGRAM, 1 DF, QD (1/DAY)
     Route: 048
     Dates: start: 20161004, end: 20161123
  61. DEXAMETHASONE [Concomitant]
     Active Substance: DEXAMETHASONE
     Dosage: 1 DOSAGE FORM, DAILY, 1 DF, QD (1/DAY)
     Route: 048
     Dates: start: 201607, end: 20160921
  62. DEXAMETHASONE [Concomitant]
     Active Substance: DEXAMETHASONE
     Dosage: 2 MILLIGRAM, UNK
     Route: 048
     Dates: start: 20150504, end: 20150904
  63. DEXAMETHASONE [Concomitant]
     Active Substance: DEXAMETHASONE
     Dosage: 1 DOSAGE FORM, DAILY, 1 DF, QD (1/DAY)
     Route: 048
     Dates: start: 20161130, end: 20161201
  64. DEXAMETHASONE [Concomitant]
     Active Substance: DEXAMETHASONE
     Dosage: 1 DOSAGE FORM, DAILY, 1 DF, QD (1/DAY)
     Route: 048
     Dates: start: 201612, end: 20170510
  65. DEXAMETHASONE [Concomitant]
     Active Substance: DEXAMETHASONE
     Dosage: 1 DOSAGE FORM, DAILY, 1 DF, QD (1/DAY)
     Route: 048
     Dates: start: 201612, end: 201612
  66. DEXAMETHASONE [Concomitant]
     Active Substance: DEXAMETHASONE
     Dosage: 2 MG, UNK
     Route: 065
     Dates: start: 20161014
  67. DEXAMETHASONE [Concomitant]
     Active Substance: DEXAMETHASONE
     Dosage: 8 MILLIGRAM
     Route: 048
     Dates: start: 20150504, end: 20150904
  68. DEXAMETHASONE [Concomitant]
     Active Substance: DEXAMETHASONE
     Dosage: 1 DOSAGE FORM, QD, 1 DF, QD (1/DAY)
     Route: 048
     Dates: start: 20160713
  69. LEVETIRACETAM [Concomitant]
     Active Substance: LEVETIRACETAM
     Indication: Epilepsy
     Dosage: 250 MG, UNK
     Route: 048
     Dates: start: 20160727, end: 20171027
  70. LEVETIRACETAM [Concomitant]
     Active Substance: LEVETIRACETAM
     Dosage: BID
     Route: 048
     Dates: start: 20160811, end: 20161027
  71. LEVETIRACETAM [Concomitant]
     Active Substance: LEVETIRACETAM
     Dosage: BID (2/DAY)
     Route: 048
     Dates: start: 20160727, end: 20160810
  72. COCODAMOL [Concomitant]
     Active Substance: ACETAMINOPHEN\CODEINE PHOSPHATE
     Indication: Headache
     Dosage: UNK, UNKNOWN ()
     Route: 048
     Dates: start: 20160929, end: 20171027
  73. FLUCONAZOLE [Concomitant]
     Active Substance: FLUCONAZOLE
     Dosage: UNK, UNKNOWN ()
     Route: 048
     Dates: start: 20171004, end: 20171004
  74. FLUCONAZOLE [Concomitant]
     Active Substance: FLUCONAZOLE
     Indication: Product used for unknown indication
  75. KEPPRA [Concomitant]
     Active Substance: LEVETIRACETAM
     Indication: Muscle twitching
     Dosage: UNK UNK, BID (2/DAY) ()
     Route: 048
     Dates: start: 20160727, end: 20160810
  76. KEPPRA [Concomitant]
     Active Substance: LEVETIRACETAM
     Dosage: UNK UNK, BID (2/DAY) ()
     Route: 048
     Dates: start: 20160811, end: 20161027
  77. BISOPROLOL [Concomitant]
     Active Substance: BISOPROLOL
     Indication: Palpitations
     Dosage: UNK
     Route: 048
     Dates: start: 20160602, end: 20171027
  78. BISOPROLOL [Concomitant]
     Active Substance: BISOPROLOL
     Dosage: 1.25 MILLIGRAM
     Route: 048
     Dates: start: 20160602
  79. METOCLOPRAMIDE [Concomitant]
     Active Substance: METOCLOPRAMIDE
     Indication: Product used for unknown indication
     Dosage: UNK, BID (2/DAY) ()
     Route: 048
     Dates: start: 20170301
  80. METOCLOPRAMIDE [Concomitant]
     Active Substance: METOCLOPRAMIDE
     Dosage: SUBSEQUENT DOSE RECEIVED ON 18/NOV/2016 ()
     Route: 048
     Dates: start: 20150506, end: 2016
  81. METOCLOPRAMIDE [Concomitant]
     Active Substance: METOCLOPRAMIDE
     Dosage: UNK, UNKNOWN ()
     Route: 048
  82. METOCLOPRAMIDE [Concomitant]
     Active Substance: METOCLOPRAMIDE
     Dosage: 2 DF, QD (1/DAY)
     Route: 048
     Dates: start: 20170301
  83. METOCLOPRAMIDE [Concomitant]
     Active Substance: METOCLOPRAMIDE
     Dosage: 2 DOSAGE FORM, DAILY
     Route: 048
     Dates: start: 20170815
  84. METOCLOPRAMIDE [Concomitant]
     Active Substance: METOCLOPRAMIDE
     Dosage: 60 MILLIGRAM, DAILY
     Route: 048
     Dates: start: 20170805
  85. METOCLOPRAMIDE [Concomitant]
     Active Substance: METOCLOPRAMIDE
     Indication: Product used for unknown indication
     Dosage: BID
     Route: 042
     Dates: start: 20150506, end: 20150903
  86. METOCLOPRAMIDE [Concomitant]
     Active Substance: METOCLOPRAMIDE
     Dosage: 2 DOSAGE FORM, DAILY, 2 DF, QD (1/DAY). UNTIL 2017
     Route: 048
     Dates: start: 20170815
  87. METOCLOPRAMIDE [Concomitant]
     Active Substance: METOCLOPRAMIDE
     Dosage: SUBSEQUENT DOSE RECEIVED ON 18/NOV/2016
     Route: 048
     Dates: start: 20170301
  88. METOCLOPRAMIDE [Concomitant]
     Active Substance: METOCLOPRAMIDE
     Dosage: UNK
     Route: 065
  89. APREPITANT [Concomitant]
     Active Substance: APREPITANT
     Indication: Prophylaxis
     Dosage: UNK UNK, UNKNOWN ()
     Route: 065
     Dates: start: 20150527, end: 20150905
  90. BECLOMETHASONE DIPROPIONATE [Concomitant]
     Active Substance: BECLOMETHASONE DIPROPIONATE
     Indication: Wheezing
     Dosage: UNK, UNKNOWN ()
     Route: 050
     Dates: end: 20160108
  91. PEGFILGRASTIM [Concomitant]
     Active Substance: PEGFILGRASTIM
     Indication: Product used for unknown indication
     Dosage: UNK, UNKNOWN ()
     Route: 058
     Dates: start: 20150506, end: 20150903
  92. QUININE SULFATE [Concomitant]
     Active Substance: QUININE SULFATE
     Indication: Muscle spasms
     Dosage: 200 MG, UNK
     Route: 048
     Dates: start: 20161123, end: 20171027
  93. NITROFURANTOIN [Concomitant]
     Active Substance: NITROFURANTOIN
     Indication: Product used for unknown indication
     Dosage: UNK, UNKNOWN ()
     Route: 065
     Dates: start: 20170621, end: 20170623
  94. CODEINE [Concomitant]
     Active Substance: CODEINE
     Indication: Diarrhoea
     Dosage: UNK, UNKNOWN ()
     Route: 048
  95. RAMIPRIL [Concomitant]
     Active Substance: RAMIPRIL
     Indication: Palpitations
     Dosage: 5 MILLIGRAM, DAILY, 5 MG, QD (1/DAY)
     Route: 048
     Dates: start: 20160308, end: 20160602
  96. RAMIPRIL [Concomitant]
     Active Substance: RAMIPRIL
     Indication: Cough
     Dosage: 435 MILLIGRAM, UNK
     Route: 065
  97. RAMIPRIL [Concomitant]
     Active Substance: RAMIPRIL
     Dosage: 5 MILLIGRAM, DAILY
     Route: 065
     Dates: start: 20160308, end: 20161005
  98. ACETAMINOPHEN [Concomitant]
     Active Substance: ACETAMINOPHEN
     Indication: Headache
     Dosage: UNK, UNKNOWN ()
     Route: 048
     Dates: start: 20160629, end: 20171027
  99. CYCLIZINE [Concomitant]
     Active Substance: CYCLIZINE
     Indication: Prophylaxis
     Dosage: 150 MILLIGRAM, DAILY, 150 MG, QD (1/DAY)
     Route: 048
     Dates: start: 20150603, end: 20150715
  100. CYCLIZINE [Concomitant]
     Active Substance: CYCLIZINE
     Indication: Prophylaxis
     Dosage: 50 MILLIGRAM
     Route: 048
     Dates: start: 20150603
  101. CYCLIZINE [Concomitant]
     Active Substance: CYCLIZINE
     Indication: Prophylaxis
  102. TRIMETHOPRIM [Concomitant]
     Active Substance: TRIMETHOPRIM
     Indication: Urinary tract infection
     Dosage: UNK, UNKNOWN ()
     Route: 048
     Dates: start: 20170209, end: 20170216
  103. SENNA [Concomitant]
     Active Substance: SENNA LEAF\SENNOSIDES\SENNOSIDES A AND B
     Indication: Constipation
     Dosage: UNK, UNKNOWN ()
     Route: 048
     Dates: start: 20161221, end: 20170327
  104. AMOXICILLIN [Concomitant]
     Active Substance: AMOXICILLIN
     Indication: Oropharyngeal pain
     Dosage: 3 DOSAGE FORM, DAILY, 3 DF,  TID (3/DAY)
     Route: 048
     Dates: start: 20151104, end: 20151111
  105. LACTULOSE [Concomitant]
     Active Substance: LACTULOSE
     Indication: Neuralgia
     Dosage: UNK
     Route: 048
  106. LACTULOSE [Concomitant]
     Active Substance: LACTULOSE
     Dosage: UNK
     Route: 048
     Dates: start: 20161221, end: 20171021
  107. LACTULOSE [Concomitant]
     Active Substance: LACTULOSE
     Dosage: UNK
     Route: 048
     Dates: start: 201603, end: 20171021
  108. LACTULOSE [Concomitant]
     Active Substance: LACTULOSE
     Dosage: UNK
     Route: 048
     Dates: start: 20170201, end: 201703
  109. IBUPROFEN [Concomitant]
     Active Substance: IBUPROFEN
     Indication: Headache
     Dosage: 1 DOSAGE FORM, DAILY, 1 TABLET
     Route: 048
     Dates: start: 20170201
  110. SPIRONOLACTONE [Concomitant]
     Active Substance: SPIRONOLACTONE
     Indication: Palpitations
     Dosage: UNK
     Route: 048
     Dates: start: 20160602, end: 20171027
  111. SPIRONOLACTONE [Concomitant]
     Active Substance: SPIRONOLACTONE
     Indication: Palpitations
  112. SPIRONOLACTONE [Concomitant]
     Active Substance: SPIRONOLACTONE
     Indication: Palpitations
  113. ONDANSETRON [Concomitant]
     Active Substance: ONDANSETRON
     Indication: Product used for unknown indication
     Dosage: UNK ()
     Route: 048
     Dates: start: 20150508, end: 20150904
  114. ONDANSETRON [Concomitant]
     Active Substance: ONDANSETRON
     Dosage: UNK, UNKNOWN ()
     Route: 048
     Dates: start: 20161111
  115. LANSOPRAZOLE [Concomitant]
     Active Substance: LANSOPRAZOLE
     Indication: Prophylaxis
     Dosage: UNK, UNKNOWN ()
     Route: 048
     Dates: start: 20150504, end: 20171027
  116. CALCIUM GLUCONATE [Concomitant]
     Active Substance: CALCIUM GLUCONATE
     Indication: Product used for unknown indication
     Dosage: UNK, UNKNOWN ()
     Route: 065
     Dates: end: 20170201
  117. CALCIUM GLUCONATE [Concomitant]
     Active Substance: CALCIUM GLUCONATE
     Indication: Product used for unknown indication
  118. CALCIUM GLUCONATE [Concomitant]
     Active Substance: CALCIUM GLUCONATE
     Indication: Product used for unknown indication
  119. VENTOLIN [Concomitant]
     Active Substance: ALBUTEROL SULFATE
     Indication: Wheezing
     Dosage: UNK, UNKNOWN ()
     Route: 065
     Dates: start: 20170621
  120. CALCIUM CARBONATE\CHOLECALCIFEROL [Concomitant]
     Active Substance: CALCIUM CARBONATE\CHOLECALCIFEROL
     Indication: Product used for unknown indication
     Dosage: UNK, UNKNOWN ()
     Route: 048
     Dates: end: 20171027
  121. CASSIA [Concomitant]
     Indication: Constipation
     Dosage: UNK, UNKNOWN ()
     Route: 048
     Dates: start: 20161221, end: 20170327
  122. LOSARTAN [Concomitant]
     Active Substance: LOSARTAN
     Indication: Palpitations
     Dosage: 50 MG, UNK
     Route: 048
  123. LOSARTAN [Concomitant]
     Active Substance: LOSARTAN
     Dosage: 50 MG, UNK
     Route: 048
     Dates: start: 20160602, end: 20171027
  124. SENNA [Concomitant]
     Active Substance: SENNA LEAF\SENNOSIDES\SENNOSIDES A AND B
     Indication: Product used for unknown indication
  125. CHLORHEXIDINE GLUCONATE [Concomitant]
     Active Substance: CHLORHEXIDINE GLUCONATE
     Indication: Mucosal inflammation
     Dosage: UNK, PRN 1 MOUTH WASH AS NEEDED ()
     Route: 048
     Dates: start: 20150514, end: 20150715
  126. CODEINE PHOSPHATE [Concomitant]
     Active Substance: CODEINE PHOSPHATE
     Indication: Product used for unknown indication
     Dosage: 60 MILLIGRAM, QD (QDS AS NEEDED)
     Route: 048
     Dates: start: 20150603
  127. CODEINE PHOSPHATE [Concomitant]
     Active Substance: CODEINE PHOSPHATE
     Indication: Product used for unknown indication
  128. CODEINE PHOSPHATE [Concomitant]
     Active Substance: CODEINE PHOSPHATE
     Indication: Product used for unknown indication
  129. CHLORPHENIRAMINE MALEATE [Concomitant]
     Active Substance: CHLORPHENIRAMINE MALEATE
     Indication: Rash
     Dosage: 5 MILLIGRAM, PRN
     Route: 048
     Dates: start: 20150725
  130. AMITRIPTYLINE [Concomitant]
     Active Substance: AMITRIPTYLINE
     Indication: Product used for unknown indication
     Dosage: 10 MILLIGRAM, DAILY
     Route: 048
     Dates: start: 201603
  131. AMITRIPTYLINE [Concomitant]
     Active Substance: AMITRIPTYLINE
     Indication: Product used for unknown indication
  132. AMITRIPTYLINE [Concomitant]
     Active Substance: AMITRIPTYLINE
     Indication: Product used for unknown indication
  133. HYDROCORTISONE [Concomitant]
     Active Substance: HYDROCORTISONE
     Indication: Rash
     Dosage: UNK,LOTION APPLICATION ()
     Route: 061
  134. HYDROCORTISONE [Concomitant]
     Active Substance: HYDROCORTISONE
     Dosage: UNK,LOTION APPLICATION ()
     Route: 061
  135. HYDROCORTISONE [Concomitant]
     Active Substance: HYDROCORTISONE
     Dosage: UNK,LOTION APPLICATION ()
     Route: 061
  136. FLUCLOXACILLIN [Concomitant]
     Active Substance: FLUCLOXACILLIN
     Indication: Nail infection
     Dosage: 250 MILLIGRAM, TID
     Route: 048
     Dates: start: 20150603, end: 20150610
  137. FLUCLOXACILLIN [Concomitant]
     Active Substance: FLUCLOXACILLIN
     Dosage: 750 MILLIGRAM, QD
     Route: 048
  138. CALAMINE [Concomitant]
     Active Substance: CALAMINE\FERRIC OXIDE RED\ZINC OXIDE
     Dosage: UNK UNK, PRN 1 APPLICATION, AS NEEDED ()
     Route: 061
     Dates: start: 20150915
  139. CALAMINE [Concomitant]
     Active Substance: CALAMINE\FERRIC OXIDE RED\ZINC OXIDE
     Indication: Product used for unknown indication
  140. CALAMINE [Concomitant]
     Active Substance: CALAMINE\FERRIC OXIDE RED\ZINC OXIDE
     Indication: Product used for unknown indication
  141. LOPERAMIDE [Concomitant]
     Active Substance: LOPERAMIDE
     Indication: Product used for unknown indication
     Dosage: 4 MILLIGRAM AS NEEDED
     Route: 048
     Dates: start: 20150514
  142. QUININE [Concomitant]
     Active Substance: QUININE
     Indication: Product used for unknown indication
     Dosage: 200 MILLIGRAM, UNK
     Route: 065
  143. SENNA LEAF [Concomitant]
     Active Substance: SENNA LEAF
     Indication: Product used for unknown indication
  144. GELCLAIR [Concomitant]
     Indication: Product used for unknown indication
     Dosage: QD (1/DAY)
     Route: 048
     Dates: start: 20150514, end: 20150514

REACTIONS (35)
  - Neuropathy peripheral [Not Recovered/Not Resolved]
  - Neuralgia [Not Recovered/Not Resolved]
  - Palpitations [Not Recovered/Not Resolved]
  - Headache [Unknown]
  - Poor peripheral circulation [Unknown]
  - Alopecia [Unknown]
  - Abdominal pain [Unknown]
  - Left ventricular dysfunction [Not Recovered/Not Resolved]
  - Rash [Recovered/Resolved]
  - Nasopharyngitis [Recovered/Resolved]
  - Fatigue [Not Recovered/Not Resolved]
  - Depressed mood [Not Recovered/Not Resolved]
  - Nausea [Recovered/Resolved]
  - Nail infection [Recovered/Resolved]
  - Mucosal inflammation [Unknown]
  - Diarrhoea [Recovered/Resolved]
  - Lacrimation increased [Not Recovered/Not Resolved]
  - Nausea [Recovered/Resolved]
  - Seizure [Unknown]
  - Headache [Recovered/Resolved]
  - Cough [Recovered/Resolved]
  - Neuropathy peripheral [Not Recovered/Not Resolved]
  - Oropharyngeal pain [Recovered/Resolved]
  - Nail disorder [Recovered/Resolved]
  - Chest pain [Recovered/Resolved]
  - Constipation [Recovered/Resolved]
  - Diarrhoea [Recovered/Resolved]
  - Dizziness [Unknown]
  - Hiccups [Recovered/Resolved]
  - Muscle spasms [Unknown]
  - Muscle twitching [Unknown]
  - Urinary tract infection [Recovered/Resolved]
  - Vaginal discharge [Recovered/Resolved]
  - Weight decreased [Unknown]
  - Muscle twitching [Unknown]

NARRATIVE: CASE EVENT DATE: 20160301
